FAERS Safety Report 5954012-7 (Version None)
Quarter: 2008Q4

REPORT INFORMATION
  Report Type: 
  Country: None (occurrence: None)
  Receive Date: 20081114
  Receipt Date: 20081027
  Transmission Date: 20090506
  Serious: Yes (Other)
  Sender: FDA-Public Use
  Company Number: US-PFIZER INC-2008094606

PATIENT
  Age: 51 Year
  Sex: Male

DRUGS (5)
  1. NELFINAVIR MESILATE [Suspect]
     Indication: HIV INFECTION
  2. STAVUDINE [Suspect]
     Indication: HIV INFECTION
  3. DIDANOSINE [Suspect]
     Indication: HIV INFECTION
  4. LAMIVUDINE [Suspect]
     Indication: HIV INFECTION
  5. ATAZANAVIR SULFATE [Suspect]
     Indication: HIV INFECTION

REACTIONS (4)
  - EYELID PTOSIS [None]
  - LIPODYSTROPHY ACQUIRED [None]
  - PERIPHERAL SENSORY NEUROPATHY [None]
  - RHEUMATOID ARTHRITIS [None]
